FAERS Safety Report 6505942-9 (Version None)
Quarter: 2009Q4

REPORT INFORMATION
  Report Type: 
  Country: None (occurrence: None)
  Receive Date: 20091218
  Receipt Date: 20091215
  Transmission Date: 20100525
  Serious: Yes (Hospitalization, Other)
  Sender: FDA-Public Use
  Company Number: US-MERCK-0908USA05130

PATIENT
  Age: 47 Year
  Sex: Female
  Weight: 80 kg

DRUGS (8)
  1. FOSAMAX [Suspect]
     Indication: OSTEOPOROSIS
     Route: 048
     Dates: start: 19990101, end: 20080601
  2. FOSAMAX [Suspect]
     Route: 048
     Dates: start: 20040101, end: 20060101
  3. FOSAMAX [Suspect]
     Route: 048
     Dates: start: 20060601, end: 20070901
  4. FOSAMAX [Suspect]
     Indication: STRESS FRACTURE
     Route: 048
     Dates: start: 19990101, end: 20080601
  5. FOSAMAX [Suspect]
     Route: 048
     Dates: start: 20040101, end: 20060101
  6. FOSAMAX [Suspect]
     Route: 048
     Dates: start: 20060601, end: 20070901
  7. CALCIUM (UNSPECIFIED) [Concomitant]
     Indication: OSTEOPOROSIS
     Route: 048
  8. VITAMIN D (UNSPECIFIED) [Concomitant]
     Indication: OSTEOPOROSIS
     Route: 065

REACTIONS (15)
  - ANAL CANCER [None]
  - ARTHRALGIA [None]
  - BLOOD CHOLESTEROL INCREASED [None]
  - EXOSTOSIS [None]
  - FEMUR FRACTURE [None]
  - HEPATIC STEATOSIS [None]
  - HYPERCALCIURIA [None]
  - HYPERTENSION [None]
  - LOW TURNOVER OSTEOPATHY [None]
  - MENISCUS LESION [None]
  - OSTEONECROSIS [None]
  - SKELETAL INJURY [None]
  - STRESS FRACTURE [None]
  - SYNOVIAL CYST [None]
  - WEIGHT INCREASED [None]
